FAERS Safety Report 6164096-1 (Version None)
Quarter: 2009Q2

REPORT INFORMATION
  Report Type: 
  Country: None (occurrence: None)
  Receive Date: 20090422
  Receipt Date: 20090417
  Transmission Date: 20091009
  Serious: Yes (Hospitalization)
  Sender: FDA-Public Use
  Company Number: A0779958A

PATIENT
  Age: 53 Year
  Sex: Female
  Weight: 62.7 kg

DRUGS (9)
  1. AVANDIA [Suspect]
     Dosage: 8MG TWICE PER DAY
     Route: 048
     Dates: start: 20050101, end: 20070501
  2. ACTOS [Concomitant]
     Dosage: 45MG UNKNOWN
     Dates: start: 20060101, end: 20060101
  3. METFORMIN HCL [Concomitant]
     Dosage: 850MG UNKNOWN
     Dates: start: 20060101, end: 20070101
  4. GLUCOTROL [Concomitant]
     Dosage: 5MG UNKNOWN
     Dates: start: 20060101
  5. METOPROLOL SUCCINATE [Concomitant]
     Dates: start: 20070101
  6. SERTRALINE HCL [Concomitant]
     Dates: start: 20070101
  7. MECLIZINE [Concomitant]
  8. ZOCOR [Concomitant]
  9. ASPIRIN [Concomitant]

REACTIONS (3)
  - CEREBROVASCULAR ACCIDENT [None]
  - CORONARY ARTERY DISEASE [None]
  - MYOCARDIAL INFARCTION [None]
